FAERS Safety Report 18451332 (Version 1)
Quarter: 2020Q4

REPORT INFORMATION
  Report Type: Spontaneous
  Country: US (occurrence: US)
  Receive Date: 20201102
  Receipt Date: 20201102
  Transmission Date: 20210114
  Serious: Yes (Other)
  Sender: FDA-Public Use
  Company Number: US-SA-2020SA296793

PATIENT

DRUGS (2)
  1. VALGANCICLOVIR. [Concomitant]
     Active Substance: VALGANCICLOVIR
     Indication: ANTIVIRAL PROPHYLAXIS
     Dosage: UNK
  2. ALEMTUZUMAB [Suspect]
     Active Substance: ALEMTUZUMAB
     Indication: COMPLICATIONS OF TRANSPLANTED LUNG
     Dosage: 30 MG, 1X
     Route: 058

REACTIONS (4)
  - Off label use [Unknown]
  - Mycobacterium fortuitum infection [Unknown]
  - Lung opacity [Unknown]
  - Lower respiratory tract infection fungal [Unknown]
